FAERS Safety Report 7093510-2 (Version None)
Quarter: 2010Q4

REPORT INFORMATION
  Report Type: 
  Country: None (occurrence: None)
  Receive Date: 20101110
  Receipt Date: 20090909
  Transmission Date: 20110411
  Serious: No
  Sender: FDA-Public Use
  Company Number: US-KINGPHARMUSA00001-K200901112

PATIENT
  Age: 40 Year
  Sex: Male

DRUGS (1)
  1. EPIPEN JR. [Suspect]
     Dosage: 0.15 MG, SINGLE
     Route: 030
     Dates: start: 20090908, end: 20090908

REACTIONS (1)
  - ACCIDENTAL EXPOSURE [None]
